FAERS Safety Report 11901154 (Version 4)
Quarter: 2016Q1

REPORT INFORMATION
  Report Type: Spontaneous
  Country: US (occurrence: US)
  Receive Date: 20160108
  Receipt Date: 20160111
  Transmission Date: 20160526
  Serious: No
  Sender: FDA-Public Use
  Company Number: US-ABBVIE-15P-163-1468734-00

PATIENT
  Sex: Female

DRUGS (4)
  1. MULTIVITAMINS [Concomitant]
     Active Substance: VITAMINS
     Indication: PRODUCT USED FOR UNKNOWN INDICATION
  2. FISH OIL [Concomitant]
     Active Substance: FISH OIL
     Indication: PRODUCT USED FOR UNKNOWN INDICATION
  3. VIEKIRA PAK [Suspect]
     Active Substance: DASABUVIR\OMBITASVIR\PARITAPREVIR\RITONAVIR
     Indication: HEPATITIS C
     Route: 048
  4. BABY ASPIRIN [Concomitant]
     Active Substance: ASPIRIN
     Indication: PRODUCT USED FOR UNKNOWN INDICATION

REACTIONS (15)
  - Finger deformity [Unknown]
  - Vertigo [Unknown]
  - Tooth fracture [Unknown]
  - Irritability [Unknown]
  - Muscular weakness [Unknown]
  - Weight fluctuation [Unknown]
  - Bone loss [Unknown]
  - Pollakiuria [Unknown]
  - Anxiety [Unknown]
  - Headache [Unknown]
  - Malaise [Unknown]
  - Tooth disorder [Unknown]
  - Fall [Unknown]
  - Abscess oral [Unknown]
  - Irritable bowel syndrome [Unknown]
